FAERS Safety Report 4963243-4 (Version None)
Quarter: 2006Q2

REPORT INFORMATION
  Report Type: 
  Country: None (occurrence: None)
  Receive Date: 20060405
  Receipt Date: 20050609
  Transmission Date: 20061013
  Serious: Yes (Hospitalization, Disabling)
  Sender: FDA-Public Use
  Company Number: US-MERCK-0506USA01523

PATIENT
  Age: 73 Year
  Sex: Female
  Weight: 67 kg

DRUGS (8)
  1. VIOXX [Suspect]
     Indication: OSTEOARTHRITIS
     Route: 048
     Dates: start: 20010501, end: 20040801
  2. ASPIRIN [Concomitant]
     Route: 065
  3. ZOCOR [Concomitant]
     Route: 048
  4. PROTONIX [Concomitant]
     Route: 065
  5. ENALAPRIL MALEATE [Concomitant]
     Route: 065
  6. ATENOLOL [Concomitant]
     Route: 065
  7. ASACOL [Concomitant]
     Route: 065
  8. AMITRIPTYLINE HYDROCHLORIDE [Concomitant]
     Route: 065

REACTIONS (8)
  - ACUTE CORONARY SYNDROME [None]
  - ACUTE MYOCARDIAL INFARCTION [None]
  - ARTERIOSCLEROSIS CORONARY ARTERY [None]
  - CHEST PAIN [None]
  - GASTRITIS [None]
  - GASTROOESOPHAGEAL REFLUX DISEASE [None]
  - NAUSEA [None]
  - VOMITING [None]
